FAERS Safety Report 5309379-X (Version None)
Quarter: 2007Q2

REPORT INFORMATION
  Report Type: 
  Country: None (occurrence: None)
  Receive Date: 20070423
  Receipt Date: 20070410
  Transmission Date: 20071010
  Serious: No
  Sender: FDA-Public Use
  Company Number: 2007-157066-NL

PATIENT
  Sex: Female

DRUGS (5)
  1. CHORIONIC GONADOTROPIN [Suspect]
     Dosage: DF NI
  2. GENERAL ANESTHETIC [Suspect]
     Dosage: DF NI
  3. UROFOLLITROPIN [Concomitant]
  4. CETRORELIX ACETATE [Concomitant]
  5. CLOMIPHENE CITRATE [Concomitant]

REACTIONS (1)
  - PULMONARY HAEMORRHAGE [None]
